FAERS Safety Report 20796203 (Version 2)
Quarter: 2022Q2

REPORT INFORMATION
  Report Type: Report from Study
  Country: US (occurrence: US)
  Receive Date: 20220506
  Receipt Date: 20220603
  Transmission Date: 20220721
  Serious: Yes (Other)
  Sender: FDA-Public Use
  Company Number: US-ORGANON-O2205USA000437

PATIENT
  Age: 23 Year
  Sex: Female
  Weight: 50.794 kg

DRUGS (1)
  1. IMPLANON [Suspect]
     Active Substance: ETONOGESTREL
     Dosage: 1 IMPLANT (DOSE/FREQUENCY REPORTED 68 MILLIGRAM (MG)) IN LEFT ARM
     Route: 059
     Dates: start: 20220420

REACTIONS (2)
  - Device expulsion [Not Recovered/Not Resolved]
  - Implant site haemorrhage [Unknown]

NARRATIVE: CASE EVENT DATE: 20220401
